FAERS Safety Report 25729389 (Version 1)
Quarter: 2025Q3

REPORT INFORMATION
  Report Type: Spontaneous
  Country: JP (occurrence: JP)
  Receive Date: 20250827
  Receipt Date: 20250827
  Transmission Date: 20251021
  Serious: Yes (Other)
  Sender: AMGEN
  Company Number: JP-KYOWAKIRIN-2025KK008953

PATIENT

DRUGS (3)
  1. DARBEPOETIN ALFA [Suspect]
     Active Substance: DARBEPOETIN ALFA
     Indication: Product used for unknown indication
     Dosage: 60 UG, 1X/2 WEEKS
     Route: 065
  2. DARBEPOETIN ALFA [Suspect]
     Active Substance: DARBEPOETIN ALFA
     Route: 065
     Dates: start: 202505
  3. INSULIN BEEF [Concomitant]
     Active Substance: INSULIN BEEF
     Indication: Diabetes mellitus
     Route: 065

REACTIONS (4)
  - Gastric fistula [Unknown]
  - Blood glucose decreased [Recovered/Resolved]
  - Speech disorder [Unknown]
  - Product dose omission issue [Unknown]

NARRATIVE: CASE EVENT DATE: 20250301
